FAERS Safety Report 5002218-6 (Version None)
Quarter: 2006Q2

REPORT INFORMATION
  Report Type: 
  Country: None (occurrence: None)
  Receive Date: 20060510
  Receipt Date: 20060427
  Transmission Date: 20061013
  Serious: Yes (Hospitalization)
  Sender: FDA-Public Use
  Company Number: 2006057870

PATIENT
  Age: 54 Year
  Sex: Male
  Weight: 65.7716 kg

DRUGS (1)
  1. BEXTRA [Suspect]
     Indication: ARTHRITIS
     Dosage: 10 MG (10 MG, 1 IN 1 D)
     Dates: start: 20020612, end: 20041008

REACTIONS (6)
  - CEREBROVASCULAR ACCIDENT [None]
  - CHEST PAIN [None]
  - CHRONIC OBSTRUCTIVE PULMONARY DISEASE [None]
  - DIABETES MELLITUS [None]
  - DRUG HYPERSENSITIVITY [None]
  - HYPERTENSION [None]
